FAERS Safety Report 8854177 (Version 3)
Quarter: 2013Q1

REPORT INFORMATION
  Report Type: Report from Study
  Country: US (occurrence: US)
  Receive Date: 20121022
  Receipt Date: 20130104
  Transmission Date: 20140127
  Serious: Yes (Hospitalization, Other)
  Sender: FDA-Public Use
  Company Number: US-JNJFOC-20121008867

PATIENT
  Sex: Female
  Weight: 68.04 kg

DRUGS (16)
  1. REMICADE [Suspect]
     Indication: CROHN^S DISEASE
     Route: 042
     Dates: start: 2009, end: 201206
  2. REMICADE [Suspect]
     Indication: COLITIS ULCERATIVE
     Route: 042
     Dates: start: 2009, end: 201206
  3. ALL OTHER THERAPEUTIC PRODUCTS [Concomitant]
  4. BENADRYL [Concomitant]
     Indication: PREMEDICATION
  5. TYLENOL [Concomitant]
     Indication: PREMEDICATION
  6. SOLU-MEDROL [Concomitant]
     Indication: PREMEDICATION
  7. ACTIGALL [Concomitant]
     Indication: CHOLANGITIS SCLEROSING
  8. PROZAC [Concomitant]
     Indication: ANXIETY
  9. ELAVIL [Concomitant]
  10. FLONASE [Concomitant]
     Indication: ASTHMA
  11. PULMICORT [Concomitant]
  12. SINGULAIR [Concomitant]
     Indication: ASTHMA
  13. CLARITIN [Concomitant]
     Indication: MULTIPLE ALLERGIES
  14. PREVACID [Concomitant]
     Indication: GASTROOESOPHAGEAL REFLUX DISEASE
  15. ALBUTEROL [Concomitant]
     Indication: ASTHMA
  16. VITAMIN D2 [Concomitant]

REACTIONS (8)
  - Oxygen saturation decreased [Recovered/Resolved]
  - Infusion related reaction [Recovered/Resolved]
  - Chest discomfort [Recovered/Resolved]
  - Dyspnoea [Recovered/Resolved]
  - Drug specific antibody present [Not Recovered/Not Resolved]
  - Heart rate increased [Recovered/Resolved]
  - Erythema [Recovered/Resolved]
  - Flushing [Recovered/Resolved]
